FAERS Safety Report 5086299-X (Version None)
Quarter: 2006Q3

REPORT INFORMATION
  Report Type: 
  Country: None (occurrence: None)
  Receive Date: 20060821
  Receipt Date: 20060821
  Transmission Date: 20061208
  Serious: Yes (Life-Threatening)
  Sender: FDA-Public Use
  Company Number: None

PATIENT
  Age: 30 Year
  Sex: Female

DRUGS (3)
  1. LAMICTAL [Suspect]
     Dosage: 100 MG TWICE DAILY
  2. IBUPROFEN [Concomitant]
  3. NALTREXONE [Concomitant]

REACTIONS (15)
  - ABASIA [None]
  - ARTHRITIS [None]
  - BACK PAIN [None]
  - GLAUCOMA [None]
  - HEPATIC CIRRHOSIS [None]
  - HEPATITIS [None]
  - MIGRAINE [None]
  - NAUSEA [None]
  - OEDEMA PERIPHERAL [None]
  - PAIN [None]
  - STEVENS-JOHNSON SYNDROME [None]
  - SYSTEMIC LUPUS ERYTHEMATOSUS [None]
  - VIRAL INFECTION [None]
  - VISION BLURRED [None]
  - WHITE BLOOD CELL COUNT DECREASED [None]
